FAERS Safety Report 6196088-0 (Version None)
Quarter: 2009Q2

REPORT INFORMATION
  Report Type: 
  Country: None (occurrence: None)
  Receive Date: 20090520
  Receipt Date: 20070517
  Transmission Date: 20091009
  Serious: Yes (Hospitalization, Other)
  Sender: FDA-Public Use
  Company Number: US-ASTRAZENECA-2006UW11070

PATIENT
  Age: 15658 Day
  Sex: Female
  Weight: 88.9 kg

DRUGS (13)
  1. SEROQUEL [Suspect]
     Indication: MENTAL DISORDER
     Dosage: 25MG TO 1500MG
     Route: 048
     Dates: start: 19980612
  2. ZYPREXA [Suspect]
     Dates: start: 19960101, end: 20000101
  3. METFORMIN HCL [Concomitant]
     Route: 048
  4. ENALAPRIL [Concomitant]
     Route: 048
  5. DEPAKOTE [Concomitant]
     Dosage: 500 MG TO 2000 MG
     Route: 048
  6. ZOCOR [Concomitant]
     Route: 048
  7. HYDROCHLOROTHIAZIDE [Concomitant]
     Route: 048
  8. AVANDIA [Concomitant]
     Route: 048
  9. ALBUTEROL [Concomitant]
     Dosage: 2 PUFFS TWO TIMES A DAY
     Route: 055
  10. HALDOL [Concomitant]
  11. ATIVAN [Concomitant]
  12. COGENTIN [Concomitant]
  13. PROLIXIN [Concomitant]

REACTIONS (11)
  - BIPOLAR I DISORDER [None]
  - CATARACT [None]
  - DIABETES MELLITUS [None]
  - EYELID PTOSIS [None]
  - HYPERSOMNIA [None]
  - MOOD ALTERED [None]
  - MUSCULAR WEAKNESS [None]
  - PAIN IN EXTREMITY [None]
  - SUBSTANCE ABUSE [None]
  - THOUGHT BLOCKING [None]
  - UPPER RESPIRATORY TRACT INFECTION [None]
